FAERS Safety Report 4311214-3 (Version None)
Quarter: 2004Q1

REPORT INFORMATION
  Report Type: 
  Country: None (occurrence: None)
  Receive Date: 20040302
  Receipt Date: 20040219
  Transmission Date: 20041129
  Serious: Yes (Death)
  Sender: FDA-Public Use
  Company Number: 04P-083-0246972-00

PATIENT
  Sex: Male

DRUGS (13)
  1. NORVIR [Suspect]
     Indication: HIV INFECTION
     Dosage: 100 MG, 2 IN 1 D
  2. INDINAVIR [Suspect]
     Indication: HIV INFECTION
     Dosage: 1200 MG, 2 IN 1 D
  3. NELFINAVIR [Suspect]
     Indication: HIV INFECTION
  4. LAMIVUDINE [Concomitant]
  5. ZIDOVUDINE [Concomitant]
  6. DIDANOSINE [Concomitant]
  7. STAVUDINE [Concomitant]
  8. NEVIRAPINE [Concomitant]
  9. EFAVIRENZ [Concomitant]
  10. STATIN [Concomitant]
  11. ASPIRIN [Concomitant]
  12. ACE INHIBITORS NOS [Concomitant]
  13. NNRTI [Concomitant]

REACTIONS (7)
  - DRUG INTERACTION [None]
  - DYSLIPIDAEMIA [None]
  - INSULIN RESISTANCE [None]
  - LIPODYSTROPHY ACQUIRED [None]
  - MYOCARDIAL INFARCTION [None]
  - REFUSAL OF TREATMENT BY PATIENT [None]
  - TREATMENT NONCOMPLIANCE [None]
